FAERS Safety Report 15661018 (Version 2)
Quarter: 2018Q4

REPORT INFORMATION
  Report Type: Spontaneous
  Country: US (occurrence: US)
  Receive Date: 20181127
  Receipt Date: 20181206
  Transmission Date: 20190205
  Serious: Yes (Hospitalization)
  Sender: FDA-Public Use
  Company Number: US-ORPHAN EUROPE-2059290

PATIENT
  Age: 6 Month
  Sex: Male
  Weight: 8.62 kg

DRUGS (1)
  1. CARBAGLU [Suspect]
     Active Substance: CARGLUMIC ACID
     Indication: HYPERGLYCINAEMIA
     Dates: start: 20180725

REACTIONS (6)
  - Vomiting [Unknown]
  - Ammonia increased [Unknown]
  - Heart rate increased [Unknown]
  - Diarrhoea infectious [Unknown]
  - Respiration abnormal [Unknown]
  - Off label use [Not Recovered/Not Resolved]

NARRATIVE: CASE EVENT DATE: 20180725
